FAERS Safety Report 7088131-1 (Version None)
Quarter: 2010Q4

REPORT INFORMATION
  Report Type: 
  Country: None (occurrence: None)
  Receive Date: 20101028
  Receipt Date: 20101012
  Transmission Date: 20110411
  Serious: Yes (Other)
  Sender: FDA-Public Use
  Company Number: ACO_02355_2010

PATIENT
  Sex: Female
  Weight: 95.2554 kg

DRUGS (8)
  1. AMPYRA [Suspect]
     Indication: GAIT DISTURBANCE
     Dosage: 10 MG BID ORAL
     Route: 048
     Dates: start: 20100913
  2. AMLODIPINE [Suspect]
     Indication: HYPERTENSION
     Dosage: DF
     Dates: start: 20100913, end: 20100920
  3. MICARDIS [Suspect]
     Indication: HYPERTENSION
     Dosage: 80 MG QD ORAL
     Route: 048
     Dates: start: 20100920
  4. METOPROLOL [Concomitant]
  5. CLONIDINE [Concomitant]
  6. TEKTURNA [Concomitant]
  7. LIPITOR [Concomitant]
  8. FUROSEMIDE [Concomitant]

REACTIONS (10)
  - BURNING SENSATION [None]
  - CHEST DISCOMFORT [None]
  - DYSPNOEA [None]
  - HEADACHE [None]
  - HYPERTENSION [None]
  - HYPOAESTHESIA [None]
  - JOINT SWELLING [None]
  - MULTIPLE SCLEROSIS RELAPSE [None]
  - OEDEMA PERIPHERAL [None]
  - PARAESTHESIA [None]
